FAERS Safety Report 5703496-8 (Version None)
Quarter: 2008Q2

REPORT INFORMATION
  Report Type: 
  Country: None (occurrence: None)
  Receive Date: 20080411
  Receipt Date: 20080331
  Transmission Date: 20081010
  Serious: Yes (Hospitalization)
  Sender: FDA-Public Use
  Company Number: US-AMGEN-QUU272351

PATIENT
  Sex: Male

DRUGS (1)
  1. ENBREL [Suspect]
     Indication: RHEUMATOID ARTHRITIS
     Route: 058
     Dates: start: 20070220

REACTIONS (5)
  - CHOLECYSTITIS INFECTIVE [None]
  - CYSTITIS [None]
  - FALL [None]
  - KIDNEY INFECTION [None]
  - PARKINSON'S DISEASE [None]
